FAERS Safety Report 9734618 (Version 3)
Quarter: 2014Q2

REPORT INFORMATION
  Report Type: Report from Study
  Country: CA (occurrence: CA)
  Receive Date: 20131206
  Receipt Date: 20140611
  Transmission Date: 20141212
  Serious: Yes (Hospitalization)
  Sender: FDA-Public Use
  Company Number: CA-ROCHE-1155872

PATIENT
  Age: 81 Year
  Sex: Female
  Weight: 72.5 kg

DRUGS (32)
  1. OBINUTUZUMAB [Suspect]
     Indication: B-CELL LYMPHOMA
     Dosage: LAST VOLUME TAKEN: 250 ML, DOSE CONCENTRATION: 4 MG/ML, DATE OF MOST RECENT DOSE PRIOR TO SAE: 07/NO
     Route: 042
     Dates: start: 20121031
  2. CYCLOPHOSPHAMIDE [Suspect]
     Indication: B-CELL LYMPHOMA
     Dosage: LAST DOSE TAKEN: 1275 MG, DATE OF MOST RECENT DOSE PRIOR TO SAE: 31/OCT/2012
     Route: 042
     Dates: start: 20121031
  3. DOXORUBICIN [Suspect]
     Indication: B-CELL LYMPHOMA
     Dosage: LAST DOSE TAKEN: 85 MG, DATE OF MOST RECENT DOSE PRIOR TO SAE: 31/OCT/2012
     Route: 042
     Dates: start: 20121031
  4. VINCRISTINE [Suspect]
     Indication: B-CELL LYMPHOMA
     Dosage: ROUTE: IV PUSH, LAST DOSE TAKEN: 2 MG, DATE OF MOST RECENT DOSE PRIOR TO SAE: 31/OCT/2012
     Route: 042
     Dates: start: 20121031
  5. PREDNISONE [Suspect]
     Indication: B-CELL LYMPHOMA
     Dosage: LAST DOSE TAKEN: 100 MG, DATE OF MOST RECENT DOSE PRIOR TO SAE: 04/NOV/2012
     Route: 048
     Dates: start: 20121031
  6. MORPHINE [Concomitant]
     Indication: GOUT
     Route: 065
     Dates: start: 20121026
  7. TYLENOL [Concomitant]
     Indication: HEADACHE
     Route: 065
     Dates: start: 20121031, end: 20121031
  8. METOCLOPRAMIDE [Concomitant]
     Indication: NAUSEA
     Route: 065
     Dates: start: 20121113, end: 20121114
  9. AMOXICILLIN [Concomitant]
     Indication: INFECTION PROPHYLAXIS
     Route: 065
     Dates: start: 20121113, end: 20121114
  10. POTASSIUM CHLORIDE [Concomitant]
     Indication: ELECTROLYTE SUBSTITUTION THERAPY
     Route: 065
     Dates: start: 20121113, end: 20121114
  11. SEPTRA [Concomitant]
     Indication: INFECTION PROPHYLAXIS
     Route: 065
     Dates: start: 20121112, end: 20121112
  12. ACYCLOVIR [Concomitant]
     Indication: INFECTION PROPHYLAXIS
     Route: 065
     Dates: start: 20121112, end: 20121112
  13. FLUCONAZOLE [Concomitant]
     Indication: INFECTION PROPHYLAXIS
     Route: 065
     Dates: start: 20121112, end: 20121112
  14. DOCUSATE SODIUM [Concomitant]
     Indication: CONSTIPATION
     Route: 065
     Dates: start: 20121112, end: 20121114
  15. SYNTHROID [Concomitant]
     Indication: HYPOTHYROIDISM
     Route: 065
     Dates: start: 2010
  16. OMEPRAZOLE [Concomitant]
     Indication: GASTROOESOPHAGEAL REFLUX DISEASE
     Route: 065
     Dates: start: 2010
  17. CODEINE [Concomitant]
     Indication: ARTHRALGIA
     Route: 065
     Dates: start: 20101017, end: 20121022
  18. COLACE [Concomitant]
     Indication: CONSTIPATION
     Route: 065
     Dates: start: 20101017
  19. DILAUDID [Concomitant]
     Indication: ARTHRALGIA
     Route: 065
     Dates: start: 20121022
  20. ZOFRAN [Concomitant]
     Indication: PROPHYLAXIS OF NAUSEA AND VOMITING
     Route: 065
     Dates: start: 20121031
  21. ALLOPURINOL [Concomitant]
     Indication: GOUT
     Route: 065
     Dates: start: 20121030
  22. SENNA [Concomitant]
     Indication: CONSTIPATION
     Route: 065
     Dates: start: 20121112, end: 20121114
  23. PIPERACILLIN/TAZOBACTAM [Concomitant]
     Indication: INFECTION PROPHYLAXIS
     Route: 065
     Dates: start: 20121112, end: 20121113
  24. ACETAMINOPHEN [Concomitant]
     Route: 065
     Dates: start: 20121031, end: 20121121
  25. PANTOPRAZOLE [Concomitant]
     Indication: GASTROOESOPHAGEAL REFLUX DISEASE
     Route: 065
     Dates: start: 20121113, end: 20121114
  26. LEVOTHYROXINE [Concomitant]
     Route: 065
     Dates: start: 20121113, end: 20121114
  27. HYDROMORPHONE [Concomitant]
     Indication: PAIN
     Route: 065
     Dates: start: 20121112, end: 20121114
  28. ENOXAPARIN [Concomitant]
     Route: 065
     Dates: start: 20121112, end: 20121112
  29. SOLU-MEDROL [Concomitant]
     Indication: NAUSEA
     Route: 065
     Dates: start: 20121031
  30. OXAZEPAM [Concomitant]
     Indication: INSOMNIA
     Route: 065
     Dates: start: 20121113, end: 20121114
  31. AMLODIPINE [Concomitant]
     Indication: ANGINA PECTORIS
     Route: 065
     Dates: start: 20121112, end: 20121114
  32. CELEBREX [Concomitant]
     Route: 065
     Dates: end: 201208

REACTIONS (1)
  - Febrile neutropenia [Recovered/Resolved]
